FAERS Safety Report 5671742-5 (Version None)
Quarter: 2008Q2

REPORT INFORMATION
  Report Type: 
  Country: None (occurrence: None)
  Receive Date: 20080228
  Receipt Date: 20080116
  Transmission Date: 20081010
  Serious: No
  Sender: FDA-Public Use
  Company Number: PHEH2008US00979

PATIENT

DRUGS (1)
  1. TASIGNA [Suspect]
     Dosage: 400 MG, BID

REACTIONS (2)
  - BONE MARROW FAILURE [None]
  - DIARRHOEA [None]
